FAERS Safety Report 5285879-6 (Version None)
Quarter: 2007Q1

REPORT INFORMATION
  Report Type: 
  Country: None (occurrence: None)
  Receive Date: 20070104
  Receipt Date: 20060912
  Transmission Date: 20070707
  Serious: Yes (Other)
  Sender: FDA-Public Use
  Company Number: BDI-008593

PATIENT
  Age: 87 Year
  Sex: Female
  Weight: 59 kg

DRUGS (2)
  1. MULTIHANCE [Suspect]
     Indication: NUCLEAR MAGNETIC RESONANCE IMAGING BRAIN
     Dosage: 40 ML ONCE IV
     Route: 042
     Dates: start: 20060826, end: 20060826
  2. MULTIHANCE [Suspect]
     Indication: VASCULAR IMAGING
     Dosage: 40 ML ONCE IV
     Route: 042
     Dates: start: 20060826, end: 20060826

REACTIONS (6)
  - DEPRESSED LEVEL OF CONSCIOUSNESS [None]
  - DYSPNOEA [None]
  - MALAISE [None]
  - RESPIRATORY ARREST [None]
  - SNEEZING [None]
  - SYNCOPE [None]
